FAERS Safety Report 25752160 (Version 1)
Quarter: 2025Q3

REPORT INFORMATION
  Report Type: Spontaneous
  Country: US (occurrence: None)
  Receive Date: 20250902
  Receipt Date: 20250902
  Transmission Date: 20251020
  Serious: Yes (Death)
  Sender: FDA-CTU
  Company Number: None

PATIENT
  Age: 57 Year
  Sex: Male

DRUGS (3)
  1. YERVOY [Suspect]
     Active Substance: IPILIMUMAB
     Indication: Hepatocellular carcinoma
     Dosage: 168MG EVERY 3 W?
  2. OPDIVO [Concomitant]
     Active Substance: NIVOLUMAB
  3. NEXAVAR [Concomitant]
     Active Substance: SORAFENIB

REACTIONS (1)
  - Death [None]
